FAERS Safety Report 14384349 (Version 3)
Quarter: 2018Q4

REPORT INFORMATION
  Report Type: Spontaneous
  Country: US (occurrence: US)
  Receive Date: 20180115
  Receipt Date: 20181015
  Transmission Date: 20190204
  Serious: Yes (Death, Hospitalization, Other)
  Sender: FDA-Public Use
  Company Number: US-MYLANLABS-2018M1001552

PATIENT
  Age: 62 Year
  Sex: Male

DRUGS (2)
  1. CLOZAPINE. [Suspect]
     Active Substance: CLOZAPINE
     Dosage: TITRATED TO 75MG DAILY OVER 4 WEEKS
     Route: 065
  2. CLOZAPINE. [Suspect]
     Active Substance: CLOZAPINE
     Indication: SCHIZOPHRENIA
     Dosage: 12.5MG DAILY
     Route: 065

REACTIONS (11)
  - Pneumonia aspiration [Fatal]
  - Sudden death [Fatal]
  - Acute respiratory failure [Fatal]
  - Cardiac failure congestive [Fatal]
  - Sepsis [Fatal]
  - Metabolic acidosis [Fatal]
  - Salivary hypersecretion [Unknown]
  - Myocardial ischaemia [Fatal]
  - Septic shock [Fatal]
  - Constipation [Unknown]
  - Orthostatic hypotension [Unknown]
